FAERS Safety Report 25737074 (Version 1)
Quarter: 2025Q3

REPORT INFORMATION
  Report Type: Spontaneous
  Country: MA (occurrence: MA)
  Receive Date: 20250828
  Receipt Date: 20250828
  Transmission Date: 20251021
  Serious: Yes (Death)
  Sender: PFIZER
  Company Number: MA-PFIZER INC-PV202500103669

PATIENT
  Sex: Male

DRUGS (1)
  1. INLYTA [Suspect]
     Active Substance: AXITINIB
     Route: 048
     Dates: start: 202503

REACTIONS (1)
  - Death [Fatal]

NARRATIVE: CASE EVENT DATE: 20250717
